FAERS Safety Report 10176987 (Version 1)
Quarter: 2014Q2

REPORT INFORMATION
  Report Type: Report from Study
  Country: JP (occurrence: JP)
  Receive Date: 20140516
  Receipt Date: 20140516
  Transmission Date: 20141212
  Serious: Yes (Death, Disabling)
  Sender: FDA-Public Use
  Company Number: JP-ABBVIE-14K-087-1237868-00

PATIENT
  Age: 46 Year
  Sex: Male

DRUGS (5)
  1. NORVIR_SOFT [Suspect]
     Indication: HIV INFECTION
     Route: 048
     Dates: start: 20100220
  2. REYATAZ [Suspect]
     Indication: HIV INFECTION
     Route: 048
     Dates: start: 20100220, end: 20120907
  3. NORVIR [Suspect]
     Indication: HIV INFECTION
     Route: 048
     Dates: end: 20120907
  4. TRUVADA [Suspect]
     Indication: HIV INFECTION
     Dosage: 1 DF
     Route: 048
     Dates: start: 20100220, end: 20130308
  5. ISENTRESS [Concomitant]
     Indication: HIV INFECTION
     Route: 048
     Dates: start: 20120908, end: 20130308

REACTIONS (1)
  - Anal squamous cell carcinoma [Fatal]
